FAERS Safety Report 13297979 (Version 1)
Quarter: 2017Q1

REPORT INFORMATION
  Report Type: Spontaneous
  Country: US (occurrence: US)
  Receive Date: 20170306
  Receipt Date: 20170306
  Transmission Date: 20170428
  Serious: Yes (Other)
  Sender: FDA-Public Use
  Company Number: US-DRREDDYS-USA/USA/17/0087583

PATIENT
  Age: 68 Year
  Sex: Female

DRUGS (1)
  1. AUGMENTIN [Suspect]
     Active Substance: AMOXICILLIN\CLAVULANATE POTASSIUM
     Indication: RESPIRATORY TRACT INFECTION
     Route: 048

REACTIONS (4)
  - Feeling abnormal [Unknown]
  - Product quality issue [Unknown]
  - Upper respiratory tract infection [Unknown]
  - Abdominal discomfort [Unknown]
